FAERS Safety Report 5180974-4 (Version None)
Quarter: 2006Q4

REPORT INFORMATION
  Report Type: 
  Country: None (occurrence: None)
  Receive Date: 20061214
  Receipt Date: 20061214
  Transmission Date: 20070319
  Serious: Yes (Life-Threatening, Hospitalization)
  Sender: FDA-Public Use
  Company Number: None

PATIENT
  Sex: Female
  Weight: 80 kg

DRUGS (1)
  1. CARMUSTINE [Suspect]
     Indication: METASTATIC MALIGNANT MELANOMA
     Dosage: 285 MG X 5 CYCLES  OVER 2 HRS IV
     Route: 042
     Dates: start: 20060501, end: 20060901

REACTIONS (2)
  - HAEMOPTYSIS [None]
  - RESPIRATORY FAILURE [None]
